FAERS Safety Report 8145664-4 (Version None)
Quarter: 2012Q1

REPORT INFORMATION
  Report Type: 
  Country: None (occurrence: None)
  Receive Date: 20120217
  Receipt Date: 20110422
  Transmission Date: 20120608
  Serious: No
  Sender: FDA-Public Use
  Company Number: US-ABBOTT-11P-163-0721324-00

PATIENT
  Sex: Male
  Weight: 81.266 kg

DRUGS (2)
  1. SIMCOR [Suspect]
     Indication: PRODUCT USED FOR UNKNOWN INDICATION
     Dosage: 500MG/UNKNOWN MG. TOOK ONCE AT BEDTIME
     Dates: start: 20110418, end: 20110418
  2. UNKNOWN LIST OF MEDICATIONS [Concomitant]
     Indication: PRODUCT USED FOR UNKNOWN INDICATION

REACTIONS (4)
  - MALAISE [None]
  - PARAESTHESIA [None]
  - SKIN WARM [None]
  - BLOOD GLUCOSE INCREASED [None]
